FAERS Safety Report 14907501 (Version 1)
Quarter: 2018Q2

REPORT INFORMATION
  Report Type: Spontaneous
  Country: US (occurrence: US)
  Receive Date: 20180428
  Receipt Date: 20180428
  Transmission Date: 20180711
  Serious: Yes (Other)
  Sender: FDA-Public Use
  Company Number: None

PATIENT
  Age: 60 Year
  Sex: Female
  Weight: 58.5 kg

DRUGS (8)
  1. PICATO [Suspect]
     Active Substance: INGENOL MEBUTATE
     Indication: SUNBURN
     Dosage: ?          OTHER STRENGTH:TUBE;QUANTITY:1 TUBE;?
     Route: 061
     Dates: start: 20180213, end: 20180213
  2. VITAMIN C [Concomitant]
     Active Substance: ASCORBIC ACID
  3. VITAMIN E [Concomitant]
     Active Substance: .ALPHA.-TOCOPHEROL
  4. VITAMIN K [Concomitant]
     Active Substance: PHYTONADIONE
  5. STRONTIUM [Concomitant]
     Active Substance: STRONTIUM
  6. BONE UP [Concomitant]
  7. VITAMIN D3 [Concomitant]
     Active Substance: CHOLECALCIFEROL
  8. ALBUTEROL INHALER [Concomitant]
     Active Substance: ALBUTEROL

REACTIONS (4)
  - Blister [None]
  - Application site pain [None]
  - Pain [None]
  - Application site erythema [None]

NARRATIVE: CASE EVENT DATE: 20180214
